FAERS Safety Report 7884343-5 (Version None)
Quarter: 2011Q4

REPORT INFORMATION
  Report Type: 
  Country: None (occurrence: None)
  Receive Date: 20111102
  Receipt Date: 20111031
  Transmission Date: 20120403
  Serious: Yes (Other)
  Sender: FDA-Public Use
  Company Number: JP-ROCHE-1008118

PATIENT
  Age: 11 Year
  Sex: Male
  Weight: 45.2 kg

DRUGS (1)
  1. ROCEPHIN [Suspect]
     Indication: APPENDICITIS
     Dosage: DOSAGE IS UNCERTAIN.
     Route: 042

REACTIONS (1)
  - RENAL FAILURE ACUTE [None]
